FAERS Safety Report 18951148 (Version 1)
Quarter: 2021Q1

REPORT INFORMATION
  Report Type: Other
  Country: NL (occurrence: NL)
  Receive Date: 20210228
  Receipt Date: 20210228
  Transmission Date: 20210420
  Serious: Yes (Hospitalization)
  Sender: FDA-Public Use
  Company Number: NL-B.BRAUN MEDICAL INC.-2107414

PATIENT
  Age: 31 Year
  Sex: Female

DRUGS (2)
  1. MAGNESIUM SULFATE IN DEXTROSE?MAGNESIUM SULFATE HEPTAHYDRATE INJECTION [Suspect]
     Active Substance: MAGNESIUM SULFATE HEPTAHYDRATE
     Indication: SEIZURE PROPHYLAXIS
     Route: 040
  2. LABETALOL [Suspect]
     Active Substance: LABETALOL\LABETALOL HYDROCHLORIDE

REACTIONS (1)
  - Drug ineffective [None]
